FAERS Safety Report 14959215 (Version 1)
Quarter: 2018Q2

REPORT INFORMATION
  Report Type: Report from Study
  Country: GB (occurrence: GB)
  Receive Date: 20180531
  Receipt Date: 20180531
  Transmission Date: 20180711
  Serious: Yes (Hospitalization)
  Sender: FDA-Public Use
  Company Number: GB-PFIZER INC-2018216440

PATIENT
  Age: 60 Year
  Sex: Female

DRUGS (8)
  1. TRASTUZUMAB. [Suspect]
     Active Substance: TRASTUZUMAB
     Indication: HER-2 POSITIVE BREAST CANCER
     Dosage: 350 MG, EVERY 3 WEEKS (LOADING DOSE)
     Route: 042
     Dates: start: 20150601, end: 20150601
  2. TRASTUZUMAB EMTANSINE [Suspect]
     Active Substance: ADO-TRASTUZUMAB EMTANSINE
     Dosage: 140 MG, EVERY 3 WEEKS
     Route: 042
     Dates: start: 20160215, end: 20160215
  3. DOCETAXEL. [Suspect]
     Active Substance: DOCETAXEL
     Indication: HER-2 POSITIVE BREAST CANCER
     Dosage: 108 MG, EVERY 3 WEEKS
     Route: 042
     Dates: start: 20150602, end: 20150602
  4. DOCETAXEL. [Suspect]
     Active Substance: DOCETAXEL
     Dosage: 86 MG, EVERY 3 WEEKS
     Route: 042
     Dates: start: 20150629, end: 20150720
  5. TRASTUZUMAB EMTANSINE [Suspect]
     Active Substance: ADO-TRASTUZUMAB EMTANSINE
     Indication: HER-2 POSITIVE BREAST CANCER
     Dosage: 172 MG, EVERY 3 WEEKS
     Route: 042
     Dates: start: 20151201, end: 20151221
  6. ERIBULIN [Suspect]
     Active Substance: ERIBULIN
     Indication: HER-2 POSITIVE BREAST CANCER
     Dosage: 1.5 MG, EVERY 3 WEEKS
     Route: 042
     Dates: start: 20160411, end: 20160624
  7. TRASTUZUMAB. [Suspect]
     Active Substance: TRASTUZUMAB
     Dosage: 300 MG, EVERY 3 WEEKS
     Route: 042
     Dates: start: 20150629, end: 20150629
  8. PERTUZUMAB. [Suspect]
     Active Substance: PERTUZUMAB
     Indication: HER-2 POSITIVE BREAST CANCER
     Dosage: 420 MG, EVERY 3 WEEKS
     Route: 042
     Dates: start: 20150622, end: 20151127

REACTIONS (1)
  - Lower respiratory tract infection [Recovered/Resolved with Sequelae]

NARRATIVE: CASE EVENT DATE: 20170213
